FAERS Safety Report 5400614-6 (Version None)
Quarter: 2007Q3

REPORT INFORMATION
  Report Type: 
  Country: None (occurrence: None)
  Receive Date: 20070730
  Receipt Date: 20070321
  Transmission Date: 20080115
  Serious: No
  Sender: FDA-Public Use
  Company Number: A0644100A

PATIENT
  Age: 40 Year
  Sex: Female

DRUGS (3)
  1. ZANTAC 150 [Suspect]
     Dosage: 300MG AS REQUIRED
     Route: 048
  2. PHENERGAN HCL [Concomitant]
  3. GUAIFENESIN [Concomitant]

REACTIONS (1)
  - DRUG SCREEN POSITIVE [None]
